FAERS Safety Report 7481505-6 (Version None)
Quarter: 2011Q2

REPORT INFORMATION
  Report Type: 
  Country: None (occurrence: None)
  Receive Date: 20110516
  Receipt Date: 20110427
  Transmission Date: 20111010
  Serious: No
  Sender: FDA-Public Use
  Company Number: US-B.I. PHARMACEUTICALS,INC./RIDGEFIELD-2011-BP-03194BP

PATIENT
  Sex: Male

DRUGS (11)
  1. FLUOXETINE [Concomitant]
     Indication: NERVOUSNESS
  2. ASPIRIN [Concomitant]
     Indication: PROPHYLAXIS
     Dosage: 81 MG
  3. DOXAZOSIN MESYLATE [Concomitant]
     Indication: PROSTATIC DISORDER
     Dosage: 4 MG
  4. ATORVASTATIN CALCIUM [Concomitant]
  5. FISH OIL [Concomitant]
     Indication: PROPHYLAXIS
  6. PRADAXA [Suspect]
     Indication: ATRIAL FIBRILLATION
     Dosage: 300 MG
     Route: 048
     Dates: start: 20110101
  7. LIPITOR [Concomitant]
     Indication: BLOOD CHOLESTEROL INCREASED
     Dosage: 80 MG
  8. OMEPRAZOLE [Concomitant]
     Indication: BARRETT'S OESOPHAGUS
     Dosage: 20 MG
  9. VITAMIN TAB [Concomitant]
     Indication: PROPHYLAXIS
  10. PRADAXA [Suspect]
     Indication: CEREBROVASCULAR ACCIDENT PROPHYLAXIS
  11. LOPRESSOR [Concomitant]
     Indication: HYPERTENSION
     Dosage: 100 MG

REACTIONS (2)
  - WOUND HAEMORRHAGE [None]
  - BLEEDING TIME PROLONGED [None]
